FAERS Safety Report 8900360 (Version 3)
Quarter: 2014Q2

REPORT INFORMATION
  Report Type: Spontaneous
  Country: US (occurrence: US)
  Receive Date: 20121109
  Receipt Date: 20140501
  Transmission Date: 20141212
  Serious: Yes (Hospitalization, Congenital Anomaly, Other)
  Sender: FDA-Public Use
  Company Number: US-JNJFOC-20121102180

PATIENT
  Sex: Male

DRUGS (1)
  1. TOPAMAX [Suspect]
     Indication: FOETAL EXPOSURE DURING PREGNANCY
     Route: 064

REACTIONS (5)
  - Cleft lip [Recovered/Resolved]
  - Cleft palate [Recovering/Resolving]
  - Eustachian tube dysfunction [Unknown]
  - Otitis media [Unknown]
  - Conductive deafness [Unknown]
